FAERS Safety Report 17160888 (Version 2)
Quarter: 2019Q4

REPORT INFORMATION
  Report Type: Spontaneous
  Country: JP (occurrence: JP)
  Receive Date: 20191216
  Receipt Date: 20191230
  Transmission Date: 20200122
  Serious: Yes (Death, Other)
  Sender: FDA-Public Use
  Company Number: JP-JAZZ-2019-JP-017494

PATIENT
  Age: 42 Year
  Sex: Male

DRUGS (4)
  1. MELPHALAN. [Concomitant]
     Active Substance: MELPHALAN
     Indication: BONE MARROW CONDITIONING REGIMEN
  2. BESPONSA [Concomitant]
     Active Substance: INOTUZUMAB OZOGAMICIN
     Indication: ACUTE LYMPHOCYTIC LEUKAEMIA
  3. DEFITELIO [Suspect]
     Active Substance: DEFIBROTIDE SODIUM
     Indication: PRODUCT USED FOR UNKNOWN INDICATION
     Dosage: 25 MG/KG/DAY
     Route: 042
     Dates: start: 20191203, end: 20191209
  4. FLUDARABIN [Concomitant]
     Active Substance: FLUDARABINE PHOSPHATE
     Indication: BONE MARROW CONDITIONING REGIMEN

REACTIONS (2)
  - Gastrointestinal haemorrhage [Fatal]
  - Hepatorenal syndrome [Fatal]

NARRATIVE: CASE EVENT DATE: 20191209
